FAERS Safety Report 5846707-0 (Version None)
Quarter: 2008Q3

REPORT INFORMATION
  Report Type: 
  Country: None (occurrence: None)
  Receive Date: 20080815
  Receipt Date: 20080808
  Transmission Date: 20090109
  Serious: Yes (Congenital Anomaly)
  Sender: FDA-Public Use
  Company Number: FR-AVENTIS-200812954FR

PATIENT
  Age: 1 Day
  Sex: Male
  Weight: 2.26 kg

DRUGS (4)
  1. LOVENOX [Suspect]
     Indication: ANTIPHOSPHOLIPID SYNDROME
     Route: 064
     Dates: start: 20070705, end: 20071001
  2. LOVENOX [Suspect]
     Route: 064
     Dates: start: 20071001, end: 20080226
  3. ASPEGIC 1000 [Suspect]
     Route: 064
     Dates: start: 20070715, end: 20080226
  4. PREVISCAN                          /00789001/ [Suspect]
     Route: 064
     Dates: start: 20050101, end: 20070705

REACTIONS (3)
  - ATRIOVENTRICULAR SEPTAL DEFECT [None]
  - CONGENITAL CENTRAL NERVOUS SYSTEM ANOMALY [None]
  - RENAL HYPERTROPHY [None]
